FAERS Safety Report 7999536-6 (Version None)
Quarter: 2011Q4

REPORT INFORMATION
  Report Type: 
  Country: None (occurrence: None)
  Receive Date: 20111221
  Receipt Date: 20111215
  Transmission Date: 20120403
  Serious: No
  Sender: FDA-Public Use
  Company Number: US-PFIZER INC-2011273729

PATIENT
  Sex: Female
  Weight: 61.224 kg

DRUGS (1)
  1. NICOTROL [Suspect]
     Indication: SMOKING CESSATION THERAPY
     Dosage: UNK, 3X/DAY
     Dates: start: 20111105, end: 20111107

REACTIONS (3)
  - DRUG INEFFECTIVE [None]
  - NAUSEA [None]
  - HEADACHE [None]
